FAERS Safety Report 8456009-4 (Version None)
Quarter: 2012Q2

REPORT INFORMATION
  Report Type: 
  Country: None (occurrence: None)
  Receive Date: 20120621
  Receipt Date: 20120613
  Transmission Date: 20120825
  Serious: Yes (Other)
  Sender: FDA-Public Use
  Company Number: PHHY2012JP051728

PATIENT
  Sex: Male

DRUGS (1)
  1. NEORAL [Suspect]
     Dosage: UNK UKN, UNK
     Route: 064
     Dates: start: 20110721

REACTIONS (3)
  - FOETAL EXPOSURE DURING PREGNANCY [None]
  - STURGE-WEBER SYNDROME [None]
  - LOW BIRTH WEIGHT BABY [None]
